FAERS Safety Report 9147104 (Version 2)
Quarter: 2013Q4

REPORT INFORMATION
  Report Type: Report from Study
  Country: BE (occurrence: BE)
  Receive Date: 20130307
  Receipt Date: 20131002
  Transmission Date: 20140711
  Serious: Yes (Hospitalization)
  Sender: FDA-Public Use
  Company Number: US-UCBSA-079377

PATIENT
  Age: 20 Month
  Sex: 0
  Weight: 10.6 kg

DRUGS (4)
  1. LACOSAMIDE [Suspect]
     Indication: CONVULSION
     Route: 048
     Dates: start: 20130222
  2. VALPROATE [Concomitant]
     Indication: EPILEPSY
     Route: 048
  3. SULTHIAME [Concomitant]
     Indication: EPILEPSY
     Route: 048
  4. SULTHIAME [Concomitant]
     Indication: EPILEPSY
     Route: 048

REACTIONS (1)
  - Status epilepticus [Recovered/Resolved]
